FAERS Safety Report 9271863 (Version 3)
Quarter: 2013Q2

REPORT INFORMATION
  Report Type: Report from Study
  Country: IT (occurrence: IT)
  Receive Date: 20130506
  Receipt Date: 20130620
  Transmission Date: 20140414
  Serious: Yes (Hospitalization)
  Sender: FDA-Public Use
  Company Number: IT-SANOFI-AVENTIS-2013SA035533

PATIENT
  Age: 73 Year
  Sex: Male
  Weight: 92 kg

DRUGS (14)
  1. CABAZITAXEL [Suspect]
     Indication: PROSTATE CANCER METASTATIC
     Route: 042
     Dates: start: 20120726, end: 20120726
  2. CABAZITAXEL [Suspect]
     Indication: PROSTATE CANCER METASTATIC
     Route: 042
     Dates: start: 20130201, end: 20130201
  3. PREDNISONE [Suspect]
     Indication: PROSTATE CANCER METASTATIC
     Route: 048
     Dates: start: 20120726, end: 20130218
  4. ZINADRIL [Concomitant]
     Route: 048
     Dates: start: 20121008
  5. PREDNISONE [Concomitant]
     Indication: PROPHYLAXIS
     Route: 048
     Dates: start: 20121008
  6. TRIPTORELIN [Concomitant]
     Route: 030
     Dates: start: 20090128
  7. TRIPTORELIN [Concomitant]
     Route: 030
     Dates: start: 20130228
  8. SIMVASTATIN [Concomitant]
     Indication: PROPHYLAXIS
     Route: 048
     Dates: start: 20121008
  9. BISOPROLOL [Concomitant]
     Route: 048
     Dates: start: 20130216
  10. FUROSEMIDE [Concomitant]
     Route: 048
     Dates: start: 20130216
  11. RAMIPRIL [Concomitant]
     Route: 048
     Dates: start: 20130216
  12. XATRAL [Concomitant]
     Route: 048
     Dates: start: 20130216
  13. HUMALOG [Concomitant]
     Route: 058
     Dates: start: 20130216
  14. HUMALOG [Concomitant]
     Route: 058
     Dates: start: 20130216

REACTIONS (1)
  - Pelvic venous thrombosis [Not Recovered/Not Resolved]
